FAERS Safety Report 14265232 (Version 2)
Quarter: 2018Q1

REPORT INFORMATION
  Report Type: Spontaneous
  Country: US (occurrence: US)
  Receive Date: 20171208
  Receipt Date: 20180309
  Transmission Date: 20180508
  Serious: No
  Sender: FDA-Public Use
  Company Number: US-PTC THERAPEUTICS, INC.-US-2017PTC001348

PATIENT

DRUGS (5)
  1. EMFLAZA [Suspect]
     Active Substance: DEFLAZACORT
     Dosage: 7.5 MG, QD
     Dates: start: 20171101
  2. PAXIL [Concomitant]
     Active Substance: PAROXETINE HYDROCHLORIDE
     Indication: DEPRESSION
     Dosage: 10 MG, QD
  3. EMFLAZA [Suspect]
     Active Substance: DEFLAZACORT
     Dosage: 7.5 MG, QD
     Route: 048
     Dates: start: 20170620
  4. KLONOPIN [Concomitant]
     Active Substance: CLONAZEPAM
     Indication: PRODUCT USED FOR UNKNOWN INDICATION
     Dosage: UNK
  5. EMFLAZA [Suspect]
     Active Substance: DEFLAZACORT
     Indication: DUCHENNE MUSCULAR DYSTROPHY
     Dosage: 15 MG, QD
     Route: 048
     Dates: start: 20170613, end: 20171101

REACTIONS (2)
  - Weight increased [Unknown]
  - Depression [Recovered/Resolved]

NARRATIVE: CASE EVENT DATE: 20171009
